FAERS Safety Report 19270732 (Version 3)
Quarter: 2023Q1

REPORT INFORMATION
  Report Type: Report from Study
  Country: AR (occurrence: AR)
  Receive Date: 20210518
  Receipt Date: 20230131
  Transmission Date: 20230418
  Serious: Yes (Hospitalization, Other)
  Sender: FDA-Public Use
  Company Number: AR-TAKEDA-AR201407967

PATIENT
  Age: 6 Year
  Sex: Male
  Weight: 35 kg

DRUGS (19)
  1. IDURSULFASE [Suspect]
     Active Substance: IDURSULFASE
     Indication: Mucopolysaccharidosis II
     Dosage: 0.5 MILLIGRAM, 1/WEEK
     Route: 042
     Dates: start: 20131006, end: 20220418
  2. METHYLPHENIDATE [Concomitant]
     Active Substance: METHYLPHENIDATE
     Indication: Attention deficit hyperactivity disorder
     Dosage: UNK, UNKNOWN
     Route: 048
     Dates: start: 20140530, end: 20150529
  3. AMOXICILLIN\CLAVULANIC ACID [Concomitant]
     Active Substance: AMOXICILLIN\CLAVULANIC ACID
     Indication: Antibiotic prophylaxis
     Dosage: UNK
     Route: 048
     Dates: end: 201402
  4. AMOXICILLIN\CLAVULANIC ACID [Concomitant]
     Active Substance: AMOXICILLIN\CLAVULANIC ACID
     Indication: Otitis media acute
     Dosage: UNK
     Route: 048
     Dates: start: 20140417, end: 20140427
  5. AMOXICILLIN\CLAVULANIC ACID [Concomitant]
     Active Substance: AMOXICILLIN\CLAVULANIC ACID
     Indication: Bronchospasm
     Dosage: UNK
     Route: 048
     Dates: start: 20140822, end: 20140901
  6. AMOXICILLIN\CLAVULANIC ACID [Concomitant]
     Active Substance: AMOXICILLIN\CLAVULANIC ACID
     Dosage: UNK
     Route: 048
     Dates: start: 20150102, end: 20150109
  7. AMOXICILLIN\CLAVULANIC ACID [Concomitant]
     Active Substance: AMOXICILLIN\CLAVULANIC ACID
     Dosage: UNK
     Route: 048
     Dates: start: 20150127, end: 20150205
  8. AMOXICILLIN\CLAVULANIC ACID [Concomitant]
     Active Substance: AMOXICILLIN\CLAVULANIC ACID
     Dosage: UNK
     Route: 048
     Dates: start: 20150406, end: 20150416
  9. CLARITHROMYCIN [Concomitant]
     Active Substance: CLARITHROMYCIN
     Indication: Antibiotic prophylaxis
     Dosage: UNK
     Route: 048
     Dates: start: 20140628, end: 20140704
  10. CLARITHROMYCIN [Concomitant]
     Active Substance: CLARITHROMYCIN
     Indication: Pneumonitis
     Dosage: UNK
     Route: 048
     Dates: start: 20150420, end: 20150430
  11. CLARITHROMYCIN [Concomitant]
     Active Substance: CLARITHROMYCIN
     Indication: Bronchospasm
     Dosage: UNK
     Route: 048
     Dates: start: 20150706, end: 20150716
  12. ALBUTEROL [Concomitant]
     Active Substance: ALBUTEROL
     Indication: Bronchospasm
     Dosage: UNK
     Route: 055
     Dates: start: 20140928, end: 20140929
  13. ALBUTEROL [Concomitant]
     Active Substance: ALBUTEROL
     Indication: Pneumonitis
     Dosage: UNK
     Route: 055
     Dates: start: 20150406, end: 20150413
  14. ALBUTEROL [Concomitant]
     Active Substance: ALBUTEROL
     Dosage: UNK
     Route: 055
     Dates: start: 20150420, end: 20150427
  15. ALBUTEROL [Concomitant]
     Active Substance: ALBUTEROL
     Dosage: UNK
     Route: 055
     Dates: start: 20150706, end: 20150713
  16. ALBUTEROL [Concomitant]
     Active Substance: ALBUTEROL
     Dosage: UNK
     Route: 055
     Dates: start: 201709
  17. RISPERIDONE [Concomitant]
     Active Substance: RISPERIDONE
     Indication: Behaviour disorder
     Dosage: UNK
     Route: 048
     Dates: start: 20150601
  18. ARIPIPRAZOLE [Concomitant]
     Active Substance: ARIPIPRAZOLE
     Indication: Behaviour disorder
     Dosage: UNK
     Route: 048
     Dates: start: 20150601
  19. MEPREDNISONE [Concomitant]
     Active Substance: MEPREDNISONE
     Indication: Pneumonitis
     Dosage: UNK
     Route: 048
     Dates: start: 201709

REACTIONS (2)
  - Acute abdomen [Recovered/Resolved]
  - Otitis media acute [Recovered/Resolved]

NARRATIVE: CASE EVENT DATE: 20140914
